FAERS Safety Report 17328077 (Version 3)
Quarter: 2020Q2

REPORT INFORMATION
  Report Type: Spontaneous
  Country: JP (occurrence: JP)
  Receive Date: 20200127
  Receipt Date: 20200618
  Transmission Date: 20200713
  Serious: Yes (Disabling, Other)
  Sender: FDA-Public Use
  Company Number: JP-FERRINGPH-2020FE00367

PATIENT
  Age: 59 Year
  Sex: Male

DRUGS (4)
  1. GONAX [Suspect]
     Active Substance: DEGARELIX
     Dosage: 240 MG
     Route: 058
     Dates: start: 20171011
  2. LEUPLIN [Concomitant]
     Active Substance: LEUPROLIDE ACETATE
     Dosage: UNK
     Dates: start: 20180530
  3. GONAX [Suspect]
     Active Substance: DEGARELIX
     Indication: PROSTATE CANCER
     Dosage: 80 MG
     Route: 058
     Dates: end: 20180529
  4. BICALUTAMIDE. [Suspect]
     Active Substance: BICALUTAMIDE
     Indication: PRODUCT USED FOR UNKNOWN INDICATION
     Dosage: UNK
     Route: 048
     Dates: start: 20171201

REACTIONS (8)
  - Injection site pain [Unknown]
  - Mesenteric vascular insufficiency [Unknown]
  - Arthralgia [Recovering/Resolving]
  - Dysuria [Unknown]
  - Loss of libido [Unknown]
  - Hypertension [Unknown]
  - Pyrexia [Unknown]
  - Muscular weakness [Unknown]
